FAERS Safety Report 4620049-3 (Version None)
Quarter: 2005Q1

REPORT INFORMATION
  Report Type: 
  Country: None (occurrence: None)
  Receive Date: 20050328
  Receipt Date: 20050216
  Transmission Date: 20050727
  Serious: Yes (Hospitalization)
  Sender: FDA-Public Use
  Company Number: US-NOVOPROD-242347

PATIENT
  Age: 56 Year
  Sex: Male
  Weight: 114 kg

DRUGS (24)
  1. NOVOSEVEN [Suspect]
     Indication: OPERATIVE HAEMORRHAGE
     Dosage: 60 UG/KG, UNK
     Route: 042
     Dates: start: 20050207, end: 20050207
  2. NOVOSEVEN [Suspect]
     Dosage: 60 UG/KG, UNK
     Route: 042
     Dates: start: 20050207, end: 20050207
  3. NOVOSEVEN [Suspect]
     Dosage: 60 UG/KG, UNK
     Route: 042
     Dates: start: 20050207, end: 20050207
  4. ATORVASTATIN CALCIUM [Concomitant]
     Indication: BLOOD CHOLESTEROL INCREASED
     Dosage: 20 MG, QD
     Route: 048
     Dates: start: 20050207
  5. ATENOLOL [Concomitant]
     Indication: ANXIETY
     Dosage: 100 MG, QD
     Route: 048
     Dates: start: 20050207
  6. CEFAZOLIN [Concomitant]
     Indication: ANTIBACTERIAL PROPHYLAXIS
     Dosage: 3 G, QD
     Route: 042
     Dates: start: 20050207, end: 20050210
  7. DOCUSATE SODIUM [Concomitant]
     Indication: PROPHYLAXIS
     Dosage: 200 MG, QD
     Route: 048
     Dates: start: 20050208
  8. FERROUS SULFATE TAB [Concomitant]
     Indication: MEDICAL DIET
     Dosage: 900 MG, QD
     Route: 048
     Dates: start: 20050208, end: 20050210
  9. FLUOXETINE [Concomitant]
     Indication: ANXIETY
     Dosage: 40 MG, QD
     Route: 048
     Dates: start: 20050207
  10. HYDROCHLOROTHIAZIDE [Concomitant]
     Indication: HYPERTENSION
     Dosage: 12.5 MG, QD
     Route: 048
     Dates: start: 20050207
  11. MORPHINE [Concomitant]
     Indication: PAIN
     Dosage: 2 MG, PRN
     Route: 042
     Dates: start: 20050208, end: 20050212
  12. MORPHINE [Concomitant]
     Dosage: 5 MG/ML, PRN
     Route: 042
     Dates: start: 20050207, end: 20050208
  13. MULTI-VITAMINS VITAFIT [Concomitant]
     Indication: MEDICAL DIET
     Dosage: 1 CAPS, QD
     Route: 048
     Dates: start: 20050207
  14. PANTOPRAZOLE [Concomitant]
     Indication: GASTROOESOPHAGEAL REFLUX DISEASE
     Dosage: 40 MG, QD
     Route: 048
     Dates: start: 20050207
  15. VALSARTAN [Concomitant]
     Indication: HYPERTENSION
     Dosage: 160 MG, QD
     Route: 048
     Dates: start: 20050207
  16. ACETAMINOPHEN [Concomitant]
     Indication: PAIN
     Dosage: 650 MG, PRN
     Route: 048
     Dates: start: 20050208, end: 20050208
  17. BUSPIRONE [Concomitant]
     Indication: ANXIETY
     Dosage: 15 MG, PRN
     Route: 048
     Dates: start: 20050207
  18. VICODIN [Concomitant]
     Indication: PAIN
     Dosage: 1 TAB, PRN
     Route: 048
     Dates: start: 20050208
  19. ONDANSETRON [Concomitant]
     Indication: NAUSEA
     Dosage: 4 MG, QD
     Route: 042
     Dates: start: 20050208, end: 20050208
  20. FUROSEMIDE [Concomitant]
     Indication: FLUID OVERLOAD
     Dosage: 10 MG, PRN
     Route: 042
     Dates: start: 20050209, end: 20050209
  21. ASPIRIN [Concomitant]
     Indication: PROPHYLAXIS
     Dosage: 81 MG, UNK
     Route: 048
     Dates: start: 20050209
  22. NITRGLYCERIN TRANSDERMAL SYSTEM [Concomitant]
     Indication: CORONARY ARTERY DISEASE
     Dosage: 2% OINT/0.5 INCH
     Route: 061
     Dates: start: 20050211, end: 20050213
  23. DEMEROL [Concomitant]
     Indication: PAIN
     Dosage: 25 MG, PRN
     Route: 042
     Dates: start: 20050212, end: 20050213
  24. KEFLEX [Concomitant]
     Indication: INFECTION
     Dosage: 2000 MG, QD
     Route: 048
     Dates: start: 20050212

REACTIONS (8)
  - BACK PAIN [None]
  - DILATATION ATRIAL [None]
  - MYOCARDIAL ISCHAEMIA [None]
  - NAUSEA [None]
  - NEPHROLITHIASIS [None]
  - PROCEDURAL COMPLICATION [None]
  - TROPONIN INCREASED [None]
  - VOMITING [None]
